FAERS Safety Report 24750515 (Version 9)
Quarter: 2025Q4

REPORT INFORMATION
  Report Type: Spontaneous
  Country: US (occurrence: US)
  Receive Date: 20241218
  Receipt Date: 20251113
  Transmission Date: 20260117
  Serious: Yes (Life-Threatening, Hospitalization, Other)
  Sender: SANDOZ
  Company Number: US-SANDOZ-SDZ2024US102683

PATIENT
  Age: 6 Year
  Sex: Female
  Weight: 25.2 kg

DRUGS (18)
  1. AMLODIPINE [Suspect]
     Active Substance: AMLODIPINE BESYLATE
     Indication: Hypertension
     Dosage: 5 MG, BID
     Route: 048
     Dates: start: 202007, end: 20241211
  2. AMLODIPINE [Suspect]
     Active Substance: AMLODIPINE BESYLATE
     Dosage: 5 MG, BID
     Route: 065
     Dates: start: 20250111
  3. AMLODIPINE [Suspect]
     Active Substance: AMLODIPINE BESYLATE
     Dosage: 2.5-5 MG SINCE JUL 2020
     Route: 065
     Dates: start: 20241216
  4. ALDACTAZIDE [Suspect]
     Active Substance: HYDROCHLOROTHIAZIDE\SPIRONOLACTONE
     Indication: Hypertension
     Dosage: UNK
     Route: 065
  5. CLONIDINE [Suspect]
     Active Substance: CLONIDINE
     Indication: Trichotillomania
     Dosage: 100 UG
     Route: 065
     Dates: start: 20241227, end: 20241228
  6. CLONIDINE [Suspect]
     Active Substance: CLONIDINE
     Indication: Hypertension
     Dosage: 20 MCG, NIGHTLY
     Route: 048
     Dates: start: 20241023, end: 20241207
  7. CLONIDINE [Suspect]
     Active Substance: CLONIDINE
     Dosage: UNK
     Route: 065
     Dates: start: 20250103
  8. CLONIDINE [Suspect]
     Active Substance: CLONIDINE
     Dosage: TAPERING DOSE SINCE OCT2024
     Route: 065
     Dates: start: 20241217
  9. ENALAPRIL MALEATE [Suspect]
     Active Substance: ENALAPRIL MALEATE
     Dosage: 5 MG, BID
     Route: 065
     Dates: start: 20250114
  10. ENALAPRIL MALEATE [Suspect]
     Active Substance: ENALAPRIL MALEATE
     Dosage: (5 ? 6 MG SINCE AUG 2024)
     Route: 048
     Dates: start: 20241108, end: 20241211
  11. ENALAPRIL MALEATE [Suspect]
     Active Substance: ENALAPRIL MALEATE
     Indication: Hypertension
     Dosage: 6 MG, BID
     Route: 048
     Dates: start: 20241108, end: 20241211
  12. ENALAPRIL MALEATE [Suspect]
     Active Substance: ENALAPRIL MALEATE
     Dosage: (5 ? 6 MG SINCE AUG 2024)
     Route: 065
  13. ENALAPRIL MALEATE [Suspect]
     Active Substance: ENALAPRIL MALEATE
     Dosage: UNK
     Route: 065
     Dates: start: 20241216
  14. TADALAFIL [Suspect]
     Active Substance: TADALAFIL
     Indication: Hypertension
     Dosage: 20 MG PO DAILY
     Route: 048
     Dates: start: 20240624
  15. TADALAFIL [Suspect]
     Active Substance: TADALAFIL
     Indication: Pulmonary hypertension
     Dosage: 20 MG, QD
     Route: 065
     Dates: start: 20240624
  16. HYDROCHLOROTHIAZIDE [Concomitant]
     Active Substance: HYDROCHLOROTHIAZIDE
     Indication: Product used for unknown indication
     Dosage: 25  MG
     Route: 048
     Dates: start: 20241124, end: 20241206
  17. PENTAMIDINE [Concomitant]
     Active Substance: PENTAMIDINE
     Indication: Pneumocystis jirovecii pneumonia
     Dosage: UNK
     Route: 065
     Dates: start: 20250115
  18. SPIRONOLACTONE [Concomitant]
     Active Substance: SPIRONOLACTONE
     Indication: Product used for unknown indication
     Dosage: 25  MG
     Route: 048
     Dates: start: 20240816, end: 20241206

REACTIONS (21)
  - Acute kidney injury [Unknown]
  - Small intestinal obstruction [Recovering/Resolving]
  - Gastroenteritis [Recovering/Resolving]
  - Hypoglycaemia [Unknown]
  - Diaphragmatic hernia [Unknown]
  - Diversion colitis [Unknown]
  - Dehydration [Recovered/Resolved]
  - Vomiting [Recovering/Resolving]
  - Hypotension [Recovered/Resolved]
  - Small intestinal obstruction [Unknown]
  - Hypokalaemia [Unknown]
  - Lethargy [Unknown]
  - Anaemia [Unknown]
  - Electrolyte imbalance [Unknown]
  - Hyponatraemia [Unknown]
  - Metabolic acidosis [Unknown]
  - Hypoalbuminaemia [Unknown]
  - Fatigue [Unknown]
  - Abdominal pain [Unknown]
  - Pyrexia [Unknown]
  - Inappropriate schedule of product administration [Unknown]

NARRATIVE: CASE EVENT DATE: 20241206
